FAERS Safety Report 10085732 (Version 2)
Quarter: 2014Q2

REPORT INFORMATION
  Report Type: Spontaneous
  Country: JP (occurrence: JP)
  Receive Date: 20140418
  Receipt Date: 20140527
  Transmission Date: 20141212
  Serious: Yes (Death, Hospitalization)
  Sender: FDA-Public Use
  Company Number: JP-JNJFOC-20140408887

PATIENT
  Age: 82 Year
  Sex: Male
  Weight: 58 kg

DRUGS (11)
  1. XARELTO [Suspect]
     Indication: CEREBROVASCULAR ACCIDENT PROPHYLAXIS
     Route: 048
     Dates: start: 20130327, end: 20140313
  2. BAKTAR [Suspect]
     Indication: PNEUMOCYSTIS JIROVECII PNEUMONIA
     Route: 048
     Dates: start: 20140330, end: 20140402
  3. PLAVIX [Concomitant]
     Route: 048
     Dates: start: 20120125, end: 20140401
  4. BAYASPIRIN [Concomitant]
     Route: 048
     Dates: start: 20120125, end: 20140401
  5. TANATRIL [Concomitant]
     Route: 048
     Dates: start: 20120125, end: 20140401
  6. FLUITRAN [Concomitant]
     Route: 048
     Dates: start: 20120125, end: 20140401
  7. LIPITOR [Concomitant]
     Route: 048
     Dates: start: 20120125, end: 20140401
  8. ARTIST [Concomitant]
     Route: 048
     Dates: start: 20120125, end: 20140401
  9. PARIET [Concomitant]
     Route: 048
     Dates: start: 20120125, end: 20140401
  10. ADALAT CR [Concomitant]
     Route: 048
     Dates: start: 20120125, end: 20140401
  11. SIGMART [Concomitant]
     Route: 048
     Dates: start: 20120125, end: 20140401

REACTIONS (1)
  - Interstitial lung disease [Fatal]
